FAERS Safety Report 5202817-2 (Version None)
Quarter: 2006Q4

REPORT INFORMATION
  Report Type: 
  Country: None (occurrence: None)
  Receive Date: 20061018
  Receipt Date: 20050920
  Transmission Date: 20070319
  Serious: Yes (Hospitalization)
  Sender: FDA-Public Use
  Company Number: PHEH2005US08785

PATIENT
  Age: 67 Year
  Sex: Female

DRUGS (7)
  1. ZOMETA [Suspect]
     Indication: BREAST CANCER METASTATIC
     Dosage: 4 MG EVERY MONTH, INTRAVENOUS
     Route: 042
     Dates: start: 20050802
  2. PROCARDIA [Concomitant]
  3. IRON (IRON) [Concomitant]
  4. ARIMIDEX [Concomitant]
  5. ASPIRIN [Concomitant]
  6. DIAZIDE (GLICLAZIDE) [Concomitant]
  7. ADVAIR (FLUTICASONE PROPIONATE, SALMETEROL XINAOFATE) [Concomitant]

REACTIONS (6)
  - BLOOD CALCIUM DECREASED [None]
  - CALCIUM IONISED DECREASED [None]
  - HYPOAESTHESIA [None]
  - HYPOCALCAEMIA [None]
  - NAUSEA [None]
  - PARAESTHESIA [None]
